FAERS Safety Report 8350989-3 (Version None)
Quarter: 2012Q2

REPORT INFORMATION
  Report Type: 
  Country: None (occurrence: None)
  Receive Date: 20120510
  Receipt Date: 20120508
  Transmission Date: 20120825
  Serious: Yes (Other)
  Sender: FDA-Public Use
  Company Number: PHHY2012US039108

PATIENT
  Age: 67 Year
  Sex: Female

DRUGS (4)
  1. BUFFERIN [Suspect]
     Indication: FIBROMYALGIA
     Dosage: 1 DF, BID
     Route: 048
  2. BUFFERIN [Suspect]
     Indication: RHEUMATOID ARTHRITIS
  3. EXCEDRIN TENSION HEADACHE CAPLETS [Concomitant]
  4. BUFFERIN [Suspect]
     Indication: PAIN

REACTIONS (3)
  - MALAISE [None]
  - ABDOMINAL PAIN UPPER [None]
  - ASTHMA [None]
